FAERS Safety Report 6662576-3 (Version None)
Quarter: 2010Q1

REPORT INFORMATION
  Report Type: 
  Country: None (occurrence: None)
  Receive Date: 20100329
  Receipt Date: 20100318
  Transmission Date: 20100710
  Serious: Yes (Hospitalization)
  Sender: FDA-Public Use
  Company Number: 2008-03630

PATIENT
  Age: 61 Year
  Sex: Male
  Weight: 70 kg

DRUGS (12)
  1. VELCADE [Suspect]
     Indication: T-CELL LYMPHOMA
     Dosage: 2.9 MG, UNK, INTRAVENOUS
     Route: 042
     Dates: start: 20070330, end: 20070806
  2. CYCLOPHOSPHAMIDE [Suspect]
     Indication: T-CELL LYMPHOMA
     Dosage: 2320 MG, UNK, INTRAVENOUS
     Route: 042
     Dates: start: 20070330, end: 20070515
  3. IFOSFAMIDE [Suspect]
     Indication: T-CELL LYMPHOMA
     Dosage: 2.8 G, UNK, INTRAVENOUS
     Route: 042
     Dates: start: 20070710, end: 20070724
  4. DOXORUBICIN HCL [Suspect]
     Indication: T-CELL LYMPHOMA
     Dosage: 146 MG, UNK, INTRAVENOUS
     Route: 042
     Dates: start: 20070330, end: 20070515
  5. ELDISINE [Suspect]
     Indication: T-CELL LYMPHOMA
     Dosage: 3.9 MG, UNK, INTRAVENOUS
     Route: 042
     Dates: start: 20070330, end: 20070515
  6. BLEOMYCIN SULFATE [Suspect]
     Indication: T-CELL LYMPHOMA
     Dosage: 10 MG, UNK, INTRAVENOUS
     Route: 042
     Dates: start: 20070330, end: 20070515
  7. METHOTREXATE [Suspect]
     Indication: T-CELL LYMPHOMA
     Dosage: 15 MG, UNK, INTRATHECAL
     Route: 037
     Dates: start: 20070330, end: 20070515
  8. METHOTREXATE [Suspect]
     Indication: T-CELL LYMPHOMA
     Dosage: 5800 MG, UNK, INTRAVENOUS
     Route: 042
     Dates: start: 20070612, end: 20070626
  9. PREDNISONE [Suspect]
     Indication: T-CELL LYMPHOMA
     Dosage: 600 MG, UNK, ORAL
     Route: 048
     Dates: start: 20070330, end: 20070519
  10. CYTARABINE [Suspect]
     Indication: T-CELL LYMPHOMA
     Dosage: 740 MG, UNK, INTRAVENOUS
     Route: 042
     Dates: start: 20070903, end: 20070920
  11. ETOPOSIDE [Suspect]
     Indication: T-CELL LYMPHOMA
     Dosage: 360 MG, UNK, INTRAVENOUS
     Route: 042
     Dates: start: 20070806, end: 20070820
  12. LYRICA [Concomitant]

REACTIONS (2)
  - CYTOLYTIC HEPATITIS [None]
  - HEPATITIS B [None]
